FAERS Safety Report 23609584 (Version 2)
Quarter: 2024Q1

REPORT INFORMATION
  Report Type: Report from Study
  Country: BE (occurrence: BE)
  Receive Date: 20240308
  Receipt Date: 20240322
  Transmission Date: 20240410
  Serious: Yes (Hospitalization)
  Sender: FDA-Public Use
  Company Number: BE-BAXTER-2024BAX014165

PATIENT
  Age: 75 Year
  Sex: Female
  Weight: 76 kg

DRUGS (15)
  1. CYCLOPHOSPHAMIDE [Suspect]
     Active Substance: CYCLOPHOSPHAMIDE
     Indication: Diffuse large B-cell lymphoma stage II
     Dosage: 1402.5 MG, EVERY 3 WEEKS, ONGOING
     Route: 042
     Dates: start: 20240125
  2. DOXORUBICIN [Suspect]
     Active Substance: DOXORUBICIN
     Indication: Diffuse large B-cell lymphoma stage II
     Dosage: 93.5 MG, EVERY 3 WEEKS, ONGOING
     Route: 042
     Dates: start: 20240125
  3. EPCORITAMAB [Suspect]
     Active Substance: EPCORITAMAB
     Indication: Diffuse large B-cell lymphoma stage II
     Dosage: 0.16 MG PRIMING DOSE; C1, D1, TOTAL
     Route: 058
     Dates: start: 20240126, end: 20240126
  4. EPCORITAMAB [Suspect]
     Active Substance: EPCORITAMAB
     Dosage: 0.16 MG RE-PRIMING DOSE, TOTAL
     Route: 058
     Dates: start: 20240207, end: 20240207
  5. EPCORITAMAB [Suspect]
     Active Substance: EPCORITAMAB
     Dosage: 0.8 MG INTERMEDIATE DOSE, TOTAL
     Route: 058
     Dates: start: 20240214, end: 20240214
  6. EPCORITAMAB [Suspect]
     Active Substance: EPCORITAMAB
     Dosage: 48 MG FULL DOSE, TOTAL
     Route: 058
     Dates: start: 20240221, end: 20240221
  7. EPCORITAMAB [Suspect]
     Active Substance: EPCORITAMAB
     Dosage: 48 MG C2- 4, D1, 8 + 15, EVERY 1 WEEKS
     Route: 058
     Dates: start: 20240229, end: 20240229
  8. RITUXIMAB [Suspect]
     Active Substance: RITUXIMAB
     Indication: Diffuse large B-cell lymphoma stage II
     Dosage: 700 MG, EVERY 3 WEEKS, ONGOING
     Route: 042
     Dates: start: 20240125
  9. VINCRISTINE [Suspect]
     Active Substance: VINCRISTINE
     Indication: Diffuse large B-cell lymphoma stage II
     Dosage: 2 MG, EVERY 3 WEEKS, ONGOING
     Route: 042
     Dates: start: 20240125
  10. PREDNISONE [Suspect]
     Active Substance: PREDNISONE
     Indication: Diffuse large B-cell lymphoma stage II
     Dosage: 100 MG DAILY C1-6, DAY 1-5, EVERY 1 DAYS, ONGOING
     Route: 048
     Dates: start: 20240125
  11. AMLODIPINE [Concomitant]
     Active Substance: AMLODIPINE BESYLATE
     Indication: Prophylaxis
     Dosage: 25 MG, EVERY 1 DAYS
     Route: 065
     Dates: start: 20231223
  12. ASPIRIN [Concomitant]
     Active Substance: ASPIRIN
     Indication: Thrombosis prophylaxis
     Dosage: 80 MG, EVERY 1 DAYS
     Route: 065
     Dates: start: 20231109
  13. DAFALGAN [Concomitant]
     Active Substance: ACETAMINOPHEN
     Indication: Sciatica
     Dosage: 1 G, AS NECESSARY
     Route: 065
     Dates: start: 20231214
  14. METFORMIN HYDROCHLORIDE [Concomitant]
     Active Substance: METFORMIN HYDROCHLORIDE
     Indication: Type 2 diabetes mellitus
     Dosage: 500 MG, EVERY 1 DAYS, (START DATE: 2020)
     Route: 065
  15. ROSUVASTATIN [Concomitant]
     Active Substance: ROSUVASTATIN
     Indication: Prophylaxis
     Dosage: 5 MG, EVERY 1 DAYS
     Route: 065
     Dates: start: 20231214

REACTIONS (2)
  - Cytokine release syndrome [Recovered/Resolved]
  - Cytokine release syndrome [Recovered/Resolved]

NARRATIVE: CASE EVENT DATE: 20240222
